FAERS Safety Report 8880786 (Version 2)
Quarter: 2012Q4

REPORT INFORMATION
  Report Type: 
  Country: BR (occurrence: BR)
  Receive Date: 20121101
  Receipt Date: 20121109
  Transmission Date: 20130627
  Serious: Yes (Hospitalization, Other)
  Sender: FDA-Public Use
  Company Number: BR-GLAXOSMITHKLINE-B0841649A

PATIENT
  Sex: Male
  Weight: 110 kg

DRUGS (5)
  1. RITMONORM (PROPAFENONE 300MG) [Suspect]
     Indication: ATRIAL FIBRILLATION
     Dosage: 300MG Per day
     Route: 048
  2. RIVOTRIL [Concomitant]
  3. CRESTOR [Concomitant]
  4. BUDESONIDE + FORMOTEROL [Concomitant]
  5. UNKNOWN DRUG [Concomitant]

REACTIONS (5)
  - Cardiac disorder [Unknown]
  - Atrial fibrillation [Recovered/Resolved]
  - Insomnia [Unknown]
  - Dyspnoea [Unknown]
  - Incorrect dose administered [Unknown]
